FAERS Safety Report 13953498 (Version 1)
Quarter: 2017Q3

REPORT INFORMATION
  Report Type: Spontaneous
  Country: US (occurrence: None)
  Receive Date: 20170908
  Receipt Date: 20170908
  Transmission Date: 20171128
  Serious: No
  Sender: FDA-Public Use
  Company Number: None

PATIENT
  Age: 68 Year
  Sex: Female

DRUGS (1)
  1. KALYDECO [Suspect]
     Active Substance: IVACAFTOR

REACTIONS (4)
  - Headache [None]
  - Upper respiratory tract infection [None]
  - Sinus disorder [None]
  - Nasopharyngitis [None]

NARRATIVE: CASE EVENT DATE: 20170818
